FAERS Safety Report 21332405 (Version 1)
Quarter: 2022Q3

REPORT INFORMATION
  Report Type: Spontaneous
  Country: SE (occurrence: SE)
  Receive Date: 20220914
  Receipt Date: 20220914
  Transmission Date: 20221027
  Serious: Yes (Other)
  Sender: FDA-Public Use
  Company Number: SE-MYLANLABS-2022M1093389

PATIENT
  Sex: Male

DRUGS (3)
  1. DYMISTA [Suspect]
     Active Substance: AZELASTINE HYDROCHLORIDE\FLUTICASONE PROPIONATE
     Indication: Rhinorrhoea
     Dosage: UNK, BID (1 SPRAY DOSE IN EACH NOSTRIL)
     Route: 065
     Dates: start: 20220530
  2. DYMISTA [Suspect]
     Active Substance: AZELASTINE HYDROCHLORIDE\FLUTICASONE PROPIONATE
     Indication: Sensation of foreign body
     Dosage: LOWER DOSE
     Route: 065
     Dates: start: 20220820, end: 20220909
  3. DYMISTA [Suspect]
     Active Substance: AZELASTINE HYDROCHLORIDE\FLUTICASONE PROPIONATE
     Indication: Lacrimation increased

REACTIONS (2)
  - Vitreous detachment [Unknown]
  - Visual impairment [Unknown]

NARRATIVE: CASE EVENT DATE: 20220601
